FAERS Safety Report 24239800 (Version 1)
Quarter: 2024Q3

REPORT INFORMATION
  Report Type: Spontaneous
  Country: US (occurrence: US)
  Receive Date: 20240822
  Receipt Date: 20240822
  Transmission Date: 20241016
  Serious: No
  Sender: AVADEL CNS PHARMA
  Company Number: US-AVADEL CNS PHARMACEUTICALS, LLC-2024AVA01219

PATIENT
  Sex: Female

DRUGS (17)
  1. LUMRYZ [Suspect]
     Active Substance: SODIUM OXYBATE
     Indication: Narcolepsy
     Dosage: 9 G, ONCE NIGHTLY
     Route: 048
     Dates: start: 202402
  2. LUMRYZ [Suspect]
     Active Substance: SODIUM OXYBATE
     Indication: Cataplexy
  3. GLYCINE [Concomitant]
     Active Substance: GLYCINE
  4. CAFFEINE [Concomitant]
     Active Substance: CAFFEINE
  5. SERMORELIN ACETATE [Concomitant]
     Active Substance: SERMORELIN ACETATE
  6. LEVOCARNITINE [Concomitant]
     Active Substance: LEVOCARNITINE
  7. THEOPHYLLINE [Concomitant]
     Active Substance: THEOPHYLLINE
  8. CYANOCOBALAMIN [Concomitant]
     Active Substance: CYANOCOBALAMIN
  9. LIRAGLUTIDE [Concomitant]
     Active Substance: LIRAGLUTIDE
  10. AMLODIPINE BESYLATE [Concomitant]
     Active Substance: AMLODIPINE BESYLATE
  11. VEOZAH [Concomitant]
     Active Substance: FEZOLINETANT
  12. ROSUVASTATIN CALCIUM [Concomitant]
     Active Substance: ROSUVASTATIN CALCIUM
  13. FISH OIL [Concomitant]
     Active Substance: FISH OIL
  14. FERROUS SULFATE [Concomitant]
     Active Substance: FERROUS SULFATE
  15. ARMODAFINIL [Concomitant]
     Active Substance: ARMODAFINIL
  16. VITAMIN D3 [Concomitant]
     Active Substance: CHOLECALCIFEROL
  17. VITAMIN C [Concomitant]
     Active Substance: ASCORBIC ACID

REACTIONS (4)
  - Weight increased [Unknown]
  - Increased appetite [Unknown]
  - Insomnia [Unknown]
  - Onychophagia [Unknown]

NARRATIVE: CASE EVENT DATE: 20240101
